FAERS Safety Report 4362899-7 (Version None)
Quarter: 2004Q2

REPORT INFORMATION
  Report Type: 
  Country: None (occurrence: None)
  Receive Date: 20040518
  Receipt Date: 20040505
  Transmission Date: 20050107
  Serious: Yes (Death, Hospitalization)
  Sender: FDA-Public Use
  Company Number: 04P-056-0260099-00

PATIENT
  Age: 75 Year
  Sex: Male

DRUGS (4)
  1. ISOPTIN [Suspect]
     Dosage: 7.2 GM, 1 IN 1 DOSE, PER ORAL
     Route: 048
     Dates: start: 20031217, end: 20031217
  2. FUROSEMIDE [Suspect]
     Dosage: 1.9 GM, 1 IN 1 DOSE, PER ORAL
     Route: 048
     Dates: start: 20031217, end: 20031217
  3. DIPYRIDAMOLE [Suspect]
     Dosage: 9.25 GM, 1 IN 1 DOSE, PER ORAL
     Route: 048
     Dates: start: 20031217, end: 20031217
  4. PENTOXIFYLLINE [Suspect]
     Dosage: 30 TABLET, 1 IN 1 DOSE, PER ORAL
     Route: 048
     Dates: start: 20031217, end: 20031217

REACTIONS (8)
  - ATRIOVENTRICULAR BLOCK [None]
  - ATRIOVENTRICULAR BLOCK SECOND DEGREE [None]
  - BLOOD POTASSIUM INCREASED [None]
  - BLOOD PRESSURE DECREASED [None]
  - CIRCULATORY COLLAPSE [None]
  - ELECTROCARDIOGRAM QRS COMPLEX PROLONGED [None]
  - INTENTIONAL OVERDOSE [None]
  - RENAL FAILURE ACUTE [None]
